FAERS Safety Report 6910887-6 (Version None)
Quarter: 2010Q3

REPORT INFORMATION
  Report Type: 
  Country: None (occurrence: None)
  Receive Date: 20100806
  Receipt Date: 20100125
  Transmission Date: 20110219
  Serious: Yes (Hospitalization, Other)
  Sender: FDA-Public Use
  Company Number: US-PFIZER INC-2010009838

PATIENT
  Sex: Male

DRUGS (4)
  1. SOLU-MEDROL [Suspect]
     Indication: MULTIPLE SCLEROSIS
  2. BETASERON [Suspect]
     Indication: MULTIPLE SCLEROSIS
     Dosage: 8 MILLIONIU, ALTERNATE DAY
     Route: 058
     Dates: start: 20020820
  3. BETASERON [Suspect]
     Dosage: 8 MILLIONIU, UNK
     Route: 058
  4. BETASERON [Suspect]
     Dosage: 8 MILLIONIU, UNK
     Route: 058

REACTIONS (5)
  - ABDOMINAL HERNIA [None]
  - FALL [None]
  - HIP ARTHROPLASTY [None]
  - INJECTION SITE CELLULITIS [None]
  - MUSCULAR WEAKNESS [None]
